FAERS Safety Report 7764831-2 (Version None)
Quarter: 2011Q3

REPORT INFORMATION
  Report Type: 
  Country: None (occurrence: None)
  Receive Date: 20110919
  Receipt Date: 20110908
  Transmission Date: 20111222
  Serious: Yes (Hospitalization, Other)
  Sender: FDA-Public Use
  Company Number: 2011SP025675

PATIENT
  Age: 47 Year
  Sex: Female
  Weight: 77.1115 kg

DRUGS (2)
  1. NUVARING [Suspect]
     Indication: MENSTRUAL DISORDER
     Dates: start: 20081201, end: 20090619
  2. NUVARING [Suspect]
     Indication: CONTRACEPTION
     Dates: start: 20081201, end: 20090619

REACTIONS (6)
  - COSTOCHONDRITIS [None]
  - ASTHMA [None]
  - PULMONARY EMBOLISM [None]
  - DEEP VEIN THROMBOSIS [None]
  - CARPAL TUNNEL SYNDROME [None]
  - PULMONARY INFARCTION [None]
